FAERS Safety Report 15337389 (Version 1)
Quarter: 2018Q3

REPORT INFORMATION
  Report Type: Report from Study
  Country: None (occurrence: US)
  Receive Date: 20180831
  Receipt Date: 20180831
  Transmission Date: 20181010
  Serious: Yes (Other)
  Sender: FDA-Public Use
  Company Number: US-ABBVIE-18S-163-2466185-00

PATIENT
  Age: 26 Year
  Sex: Female

DRUGS (5)
  1. PREZCOBIX [Suspect]
     Active Substance: COBICISTAT\DARUNAVIR ETHANOLATE
     Indication: PRODUCT USED FOR UNKNOWN INDICATION
     Dosage: STARTED AT FIRST TRIMESTER
     Route: 048
     Dates: end: 20180711
  2. NORVIR [Suspect]
     Active Substance: RITONAVIR
     Indication: HIV INFECTION
     Dosage: STARTED AT FIRST TRIMESTER, ONGOING AT DELIVERY
     Route: 048
     Dates: start: 20180711
  3. ISENTRESS [Suspect]
     Active Substance: RALTEGRAVIR POTASSIUM
     Indication: PRODUCT USED FOR UNKNOWN INDICATION
     Dosage: STARTED AT FIRST TRIMESTER, ONGOING AT DELIVERY
     Route: 048
     Dates: start: 20180713
  4. TIVICAY [Suspect]
     Active Substance: DOLUTEGRAVIR SODIUM
     Indication: PRODUCT USED FOR UNKNOWN INDICATION
     Dosage: STARTED AT FIRST TRIMESTER, ONGOING AT DELIVERY
     Route: 048
     Dates: end: 20180711
  5. PREZISTA [Suspect]
     Active Substance: DARUNAVIR ETHANOLATE
     Indication: PRODUCT USED FOR UNKNOWN INDICATION
     Dosage: STARTED AT FIRST TRIMESTER
     Route: 048
     Dates: start: 20180711

REACTIONS (2)
  - Abortion spontaneous [Unknown]
  - Exposure during pregnancy [Unknown]
